FAERS Safety Report 25787944 (Version 2)
Quarter: 2025Q3

REPORT INFORMATION
  Report Type: Spontaneous
  Country: JP (occurrence: JP)
  Receive Date: 20250910
  Receipt Date: 20250912
  Transmission Date: 20251020
  Serious: Yes (Death, Hospitalization)
  Sender: SHIONOGI
  Company Number: JP-shionogi-202500009504

PATIENT
  Age: 9 Decade
  Sex: Male

DRUGS (1)
  1. CEFIDEROCOL [Suspect]
     Active Substance: CEFIDEROCOL
     Indication: Cholangitis
     Route: 041
     Dates: start: 20250829, end: 20250831

REACTIONS (1)
  - Death [Fatal]

NARRATIVE: CASE EVENT DATE: 20250831
